FAERS Safety Report 6435927-2 (Version None)
Quarter: 2009Q4

REPORT INFORMATION
  Report Type: 
  Country: None (occurrence: None)
  Receive Date: 20091111
  Receipt Date: 20091106
  Transmission Date: 20100525
  Serious: Yes (Other)
  Sender: FDA-Public Use
  Company Number: FR-WYE-G04814509

PATIENT
  Age: 28 Year
  Sex: Female

DRUGS (2)
  1. EFFEXOR [Suspect]
     Indication: SCHIZOPHRENIA
     Dosage: UNKNOWN; REPORTED AS NORMAL DAILY DOSE
     Route: 048
     Dates: start: 20050101
  2. ABILIFY [Suspect]
     Indication: SCHIZOPHRENIA
     Dosage: UNKNOWN
     Route: 048
     Dates: start: 20050101

REACTIONS (2)
  - AGRANULOCYTOSIS [None]
  - MYELOID MATURATION ARREST [None]
